FAERS Safety Report 15809281 (Version 1)
Quarter: 2019Q1

REPORT INFORMATION
  Report Type: Spontaneous
  Country: US (occurrence: US)
  Receive Date: 20190110
  Receipt Date: 20190110
  Transmission Date: 20190417
  Serious: No
  Sender: FDA-Public Use
  Company Number: US-ELI_LILLY_AND_COMPANY-US201901003367

PATIENT

DRUGS (5)
  1. TRULICITY [Suspect]
     Active Substance: DULAGLUTIDE
     Indication: DIABETES MELLITUS
     Dosage: 0.75 MG, UNKNOWN
     Route: 058
  2. BENADRYL [Suspect]
     Active Substance: DIPHENHYDRAMINE HYDROCHLORIDE
     Indication: RASH PRURITIC
  3. LIDOCAINE. [Suspect]
     Active Substance: LIDOCAINE
     Indication: RASH PRURITIC
  4. LIDOCAINE. [Suspect]
     Active Substance: LIDOCAINE
     Indication: INJECTION SITE RASH
     Dosage: UNK, UNKNOWN
     Route: 065
  5. BENADRYL [Suspect]
     Active Substance: DIPHENHYDRAMINE HYDROCHLORIDE
     Indication: INJECTION SITE RASH
     Dosage: UNK, UNKNOWN
     Route: 065

REACTIONS (2)
  - Rash pruritic [Unknown]
  - Injection site rash [Recovering/Resolving]
